FAERS Safety Report 6682549-4 (Version None)
Quarter: 2010Q2

REPORT INFORMATION
  Report Type: 
  Country: None (occurrence: None)
  Receive Date: 20100415
  Receipt Date: 20100315
  Transmission Date: 20101027
  Serious: No
  Sender: FDA-Public Use
  Company Number: US-BAYER-201013253BCC

PATIENT
  Age: 55 Year
  Sex: Female
  Weight: 61 kg

DRUGS (5)
  1. ALEVE (CAPLET) [Suspect]
     Indication: ARTHRALGIA
     Route: 048
     Dates: start: 20100101
  2. BAYER 81MG REGIMEN [Concomitant]
     Route: 065
  3. SIMVASTATIN [Concomitant]
     Route: 065
  4. COSART [Concomitant]
     Route: 065
  5. VITAMIN TAB [Concomitant]
     Route: 065

REACTIONS (2)
  - MALAISE [None]
  - PALPITATIONS [None]
